FAERS Safety Report 8988985 (Version 1)
Quarter: 2012Q4

REPORT INFORMATION
  Report Type: Spontaneous
  Country: US (occurrence: None)
  Receive Date: 20121220
  Receipt Date: 20121220
  Transmission Date: 20130627
  Serious: Yes (Hospitalization)
  Sender: FDA-Public Use
  Company Number: 12AE014

PATIENT
  Age: 60 Year
  Sex: Female

DRUGS (2)
  1. IBUPROFEN [Suspect]
     Indication: BACKACHE
     Dosage: 2 tablets
     Route: 048
     Dates: start: 20121209
  2. VITAMINS (CALCIUM) [Concomitant]

REACTIONS (2)
  - Angioedema [None]
  - Chest pain [None]
